FAERS Safety Report 7258492-9 (Version None)
Quarter: 2011Q1

REPORT INFORMATION
  Report Type: 
  Country: None (occurrence: None)
  Receive Date: 20110129
  Receipt Date: 20100629
  Transmission Date: 20110831
  Serious: No
  Sender: FDA-Public Use
  Company Number: US-ABBOTT-10P-163-0647697-00

PATIENT
  Sex: Male
  Weight: 88.53 kg

DRUGS (13)
  1. HUMIRA [Suspect]
     Indication: CROHN'S DISEASE
     Dates: start: 20100509
  2. RESTORIL [Concomitant]
     Indication: INSOMNIA
  3. MOUTH PASTE [Concomitant]
     Indication: PRODUCT USED FOR UNKNOWN INDICATION
     Dosage: USED SPARINGLY
  4. AMBIEN [Concomitant]
     Indication: INSOMNIA
     Dosage: 2 TABS AT BEDTIME
  5. PREDNISONE [Concomitant]
     Indication: PRODUCT USED FOR UNKNOWN INDICATION
     Dosage: TITRATION 5MG, THEN 4, THEN 3, THEN 1
  6. WELLBUTRIN [Concomitant]
     Indication: DEPRESSION
     Dosage: 200 SR DAILY
  7. OXYCODONE [Concomitant]
     Indication: PRODUCT USED FOR UNKNOWN INDICATION
  8. MOUTHWASH [Concomitant]
     Indication: PRODUCT USED FOR UNKNOWN INDICATION
     Dosage: 3-4 TIMES A DAY
  9. HUMIRA [Suspect]
  10. FLAGYL [Concomitant]
     Indication: PRODUCT USED FOR UNKNOWN INDICATION
  11. PENTASA [Concomitant]
     Indication: CROHN'S DISEASE
  12. GLYCERINE GARGLES [Concomitant]
     Indication: STOMATITIS
  13. VITAMIN B COMPLEX [Concomitant]
     Indication: VITAMIN SUPPLEMENTATION

REACTIONS (7)
  - MOUTH ULCERATION [None]
  - HEADACHE [None]
  - RESPIRATORY DISTRESS [None]
  - WHEEZING [None]
  - SWOLLEN TONGUE [None]
  - MUSCLE TWITCHING [None]
  - FATIGUE [None]
